FAERS Safety Report 23575357 (Version 1)
Quarter: 2024Q1

REPORT INFORMATION
  Report Type: Spontaneous
  Country: US (occurrence: None)
  Receive Date: 20240227
  Receipt Date: 20240227
  Transmission Date: 20240410
  Serious: No
  Sender: FDA-Public Use
  Company Number: None

PATIENT
  Age: 70 Year
  Sex: Female

DRUGS (1)
  1. LENALIDOMIDE [Suspect]
     Active Substance: LENALIDOMIDE
     Indication: Plasma cell myeloma
     Dosage: 20MG QD  ORAL?
     Route: 048
     Dates: start: 20231204, end: 20240227

REACTIONS (2)
  - Paralysis [None]
  - Aphasia [None]

NARRATIVE: CASE EVENT DATE: 20240224
